FAERS Safety Report 23948746 (Version 1)
Quarter: 2024Q2

REPORT INFORMATION
  Report Type: Spontaneous
  Country: CA (occurrence: CA)
  Receive Date: 20240607
  Receipt Date: 20240607
  Transmission Date: 20240716
  Serious: Yes (Other)
  Sender: FDA-Public Use
  Company Number: CA-TEVA-VS-3204247

PATIENT
  Age: 40 Year
  Sex: Male

DRUGS (1)
  1. METHOTREXATE SODIUM [Suspect]
     Active Substance: METHOTREXATE SODIUM
     Indication: Colitis ulcerative
     Dosage: DURATION: 366 UNKNOWN
     Route: 065

REACTIONS (4)
  - Anal inflammation [Unknown]
  - Crohn^s disease [Unknown]
  - Off label use [Unknown]
  - Stenosis [Unknown]
